FAERS Safety Report 21519614 (Version 14)
Quarter: 2023Q1

REPORT INFORMATION
  Report Type: Report from Study
  Country: FR (occurrence: None)
  Receive Date: 20221028
  Receipt Date: 20230310
  Transmission Date: 20230418
  Serious: Yes (Hospitalization)
  Sender: FDA-Public Use
  Company Number: FR-Eisai Medical Research-EC-2022-126714

PATIENT
  Age: 75 Year
  Sex: Male
  Weight: 83 kg

DRUGS (10)
  1. LENVATINIB [Suspect]
     Active Substance: LENVATINIB
     Indication: Hepatocellular carcinoma
     Route: 048
     Dates: start: 20221011, end: 20221020
  2. PEMBROLIZUMAB [Suspect]
     Active Substance: PEMBROLIZUMAB
     Indication: Hepatocellular carcinoma
     Route: 041
     Dates: start: 20221011, end: 20221011
  3. BELZUTIFAN [Suspect]
     Active Substance: BELZUTIFAN
     Indication: Hepatocellular carcinoma
     Route: 048
     Dates: start: 20221011, end: 20221020
  4. METFORMIN [Concomitant]
     Active Substance: METFORMIN HYDROCHLORIDE
     Dates: start: 199501
  5. TRULICITY [Concomitant]
     Active Substance: DULAGLUTIDE
     Dates: start: 199501
  6. TOUJEO [Concomitant]
     Active Substance: INSULIN GLARGINE
     Dates: start: 199501
  7. COVERAM [Concomitant]
     Active Substance: AMLODIPINE\PERINDOPRIL
     Dates: start: 199501
  8. ATORVASTATIN [Concomitant]
     Active Substance: ATORVASTATIN
     Dates: start: 200001
  9. VESICARE [Concomitant]
     Active Substance: SOLIFENACIN SUCCINATE
     Dates: start: 200001
  10. SILODOSIN [Concomitant]
     Active Substance: SILODOSIN
     Dates: start: 200001

REACTIONS (2)
  - Malignant neoplasm progression [Not Recovered/Not Resolved]
  - Hypoxia [Recovered/Resolved]

NARRATIVE: CASE EVENT DATE: 20221013
